FAERS Safety Report 13010211 (Version 1)
Quarter: 2016Q4

REPORT INFORMATION
  Report Type: Spontaneous
  Country: GB (occurrence: GB)
  Receive Date: 20161208
  Receipt Date: 20161208
  Transmission Date: 20170207
  Serious: Yes (Death)
  Sender: FDA-Public Use
  Company Number: GB-PFIZER INC-2016567293

PATIENT
  Age: 61 Year
  Sex: Female

DRUGS (2)
  1. DESFERAL [Suspect]
     Active Substance: DEFEROXAMINE MESYLATE
     Dosage: 2 G, ONCE EVERY 3 WEEKS
  2. HYDROCORTISONE SODIUM SUCCINATE [Suspect]
     Active Substance: HYDROCORTISONE SODIUM SUCCINATE
     Dosage: 5 MG, UNK

REACTIONS (1)
  - Death [Fatal]
